FAERS Safety Report 6582838-8 (Version None)
Quarter: 2010Q1

REPORT INFORMATION
  Report Type: 
  Country: None (occurrence: None)
  Receive Date: 20100212
  Receipt Date: 20100212
  Transmission Date: 20100710
  Serious: No
  Sender: FDA-Public Use
  Company Number: None

PATIENT
  Age: 56 Year
  Sex: Male
  Weight: 81.2 kg

DRUGS (1)
  1. DOCETAXEL [Suspect]
     Indication: PROSTATE CANCER
     Dosage: 146 MG ONCE IV
     Route: 042
     Dates: start: 20090618, end: 20090618

REACTIONS (3)
  - CHEST DISCOMFORT [None]
  - RASH [None]
  - RESPIRATORY DEPRESSION [None]
